FAERS Safety Report 4778421-7 (Version None)
Quarter: 2005Q3

REPORT INFORMATION
  Report Type: 
  Country: None (occurrence: None)
  Receive Date: 20050926
  Receipt Date: 20050921
  Transmission Date: 20060218
  Serious: Yes (Death)
  Sender: FDA-Public Use
  Company Number: ES-SANOFI-SYNTHELABO-A01200506425

PATIENT
  Sex: Male

DRUGS (1)
  1. FASTURTEC [Suspect]
     Dosage: UNK
     Route: 065

REACTIONS (1)
  - BRONCHOSPASM [None]
